FAERS Safety Report 14983460 (Version 11)
Quarter: 2018Q4

REPORT INFORMATION
  Report Type: Spontaneous
  Country: DE (occurrence: DE)
  Receive Date: 20180607
  Receipt Date: 20181006
  Transmission Date: 20190204
  Serious: Yes (Death)
  Sender: FDA-Public Use
  Company Number: DE-009507513-1805DEU014340

PATIENT
  Age: 35 Year
  Sex: Male
  Weight: 73.7 kg

DRUGS (10)
  1. CLONAZEPAM. [Concomitant]
     Active Substance: CLONAZEPAM
  2. TENAMFETAMINE [Concomitant]
     Active Substance: TENAMFETAMINE
  3. NALOXONE HYDROCHLORIDE (+) TILIDINE HYDROCHLORIDE [Concomitant]
     Active Substance: NALOXONE HYDROCHLORIDE\TILIDINE HYDROCHLORIDE
  4. LIDOCAINE. [Concomitant]
     Active Substance: LIDOCAINE
  5. OLANZAPINE. [Suspect]
     Active Substance: OLANZAPINE
  6. AMPHETAMINE [Concomitant]
     Active Substance: AMPHETAMINE
     Dosage: UNK
  7. BUPRENORPHINE. [Concomitant]
     Active Substance: BUPRENORPHINE
     Dosage: UNK
     Route: 065
  8. ROCURONIUM BROMIDE. [Suspect]
     Active Substance: ROCURONIUM BROMIDE
     Dosage: UNK
  9. MIDOMAFETAMINE [Concomitant]
     Active Substance: MIDOMAFETAMINE
     Dosage: UNK
  10. METHADONE HYDROCHLORIDE. [Concomitant]
     Active Substance: METHADONE HYDROCHLORIDE

REACTIONS (2)
  - Toxicity to various agents [Fatal]
  - Overdose [Fatal]
